FAERS Safety Report 9912770 (Version 1)
Quarter: 2014Q1

REPORT INFORMATION
  Report Type: Spontaneous
  Country: NL (occurrence: None)
  Receive Date: 20140214
  Receipt Date: 20140214
  Transmission Date: 20141002
  Serious: Yes (Other)
  Sender: FDA-Public Use
  Company Number: 2013AP009489

PATIENT
  Age: 80 Year
  Sex: Female

DRUGS (1)
  1. FENTANYL (FENTANYL) [Suspect]
     Route: 062

REACTIONS (13)
  - Drug withdrawal syndrome [None]
  - Cardiac arrest [None]
  - Anxiety [None]
  - Diarrhoea [None]
  - Tachycardia [None]
  - Tachypnoea [None]
  - Rhinorrhoea [None]
  - Chills [None]
  - Yawning [None]
  - Nausea [None]
  - Nervousness [None]
  - Chills [None]
  - Insomnia [None]
